FAERS Safety Report 14754108 (Version 3)
Quarter: 2018Q2

REPORT INFORMATION
  Report Type: Spontaneous
  Country: JP (occurrence: JP)
  Receive Date: 20180412
  Receipt Date: 20180530
  Transmission Date: 20180711
  Serious: Yes (Other)
  Sender: FDA-Public Use
  Company Number: JP-GILEAD-2018-0331301

PATIENT
  Age: 51 Year
  Sex: Male
  Weight: 67 kg

DRUGS (4)
  1. TALION                             /01587402/ [Concomitant]
     Active Substance: BEPOTASTINE
     Dosage: 20 MG, UNK
     Route: 048
  2. REBETOL [Concomitant]
     Active Substance: RIBAVIRIN
     Route: 065
  3. SOVALDI [Suspect]
     Active Substance: SOFOSBUVIR
     Indication: HEPATITIS C
     Dosage: UNK
     Route: 065
     Dates: start: 20180201, end: 20180329
  4. FAMOTIDINE. [Concomitant]
     Active Substance: FAMOTIDINE
     Dosage: 20 MG, UNK
     Route: 048

REACTIONS (2)
  - Aspartate aminotransferase increased [Recovered/Resolved]
  - Alanine aminotransferase increased [Recovered/Resolved]

NARRATIVE: CASE EVENT DATE: 20180329
